FAERS Safety Report 6964444-6 (Version None)
Quarter: 2010Q3

REPORT INFORMATION
  Report Type: 
  Country: None (occurrence: None)
  Receive Date: 20100903
  Receipt Date: 20100825
  Transmission Date: 20110219
  Serious: Yes (Other)
  Sender: FDA-Public Use
  Company Number: US-PFIZER INC-2010107244

PATIENT

DRUGS (1)
  1. ZYVOX [Suspect]

REACTIONS (1)
  - BRADYCARDIA [None]
